FAERS Safety Report 9461183 (Version 1)
Quarter: 2013Q3

REPORT INFORMATION
  Report Type: Spontaneous
  Country: JP (occurrence: JP)
  Receive Date: 20130816
  Receipt Date: 20130816
  Transmission Date: 20140515
  Serious: Yes (Other)
  Sender: FDA-Public Use
  Company Number: JP-009507513-1308JPN005343

PATIENT
  Age: 36 Year
  Sex: Male

DRUGS (3)
  1. PROPECIA TABLETS 0.2MG [Suspect]
     Dosage: DAILY DOSAGE UNKNOWN
     Route: 048
  2. THYRADIN [Concomitant]
     Dosage: DAILY DOSAGE UNKNOWN
     Route: 048
  3. PARAMIDIN [Concomitant]
     Dosage: DAILY DOSAGE UNKNOWN
     Route: 048

REACTIONS (1)
  - Thyroid cancer [Unknown]
